FAERS Safety Report 8880578 (Version 2)
Quarter: 2012Q4

REPORT INFORMATION
  Report Type: 
  Country: US (occurrence: US)
  Receive Date: 20121101
  Receipt Date: 20121221
  Transmission Date: 20130627
  Serious: Yes (Other)
  Sender: FDA-Public Use
  Company Number: US-BAYER-2012-112271

PATIENT
  Age: 29 Year
  Sex: Female
  Weight: 67.57 kg

DRUGS (2)
  1. MIRENA [Suspect]
     Indication: CONTRACEPTION
     Dosage: 20 mcg/24hr, CONT
     Route: 015
     Dates: start: 200403, end: 20120724
  2. TAILENOL PM [Concomitant]
     Indication: SLEEP DISORDER

REACTIONS (4)
  - Device breakage [None]
  - Complication of device removal [Not Recovered/Not Resolved]
  - Device misuse [None]
  - Vulvovaginal human papilloma virus infection [None]
